FAERS Safety Report 17690745 (Version 4)
Quarter: 2020Q3

REPORT INFORMATION
  Report Type: Report from Study
  Country: US (occurrence: US)
  Receive Date: 20200421
  Receipt Date: 20200731
  Transmission Date: 20201102
  Serious: No
  Sender: FDA-Public Use
  Company Number: US-INCYTE CORPORATION-2020IN003437

PATIENT

DRUGS (8)
  1. JAKAFI [Suspect]
     Active Substance: RUXOLITINIB
     Indication: MYELOFIBROSIS
     Dosage: TAKE 2 (5MG) JAKAFI TABLETS TWICE A DAY
     Route: 065
  2. JAKAFI [Suspect]
     Active Substance: RUXOLITINIB
     Dosage: 20 MILLIGRAM, BID
     Route: 048
     Dates: start: 20200509
  3. JAKAFI [Suspect]
     Active Substance: RUXOLITINIB
     Dosage: TAKE 3 (5MG) JAKAFI TABLETS TWICE A DAY
     Route: 065
  4. JAKAFI [Suspect]
     Active Substance: RUXOLITINIB
     Dosage: 15 MILLIGRAM, BID
     Route: 048
     Dates: start: 20200415
  5. JAKAFI [Suspect]
     Active Substance: RUXOLITINIB
     Dosage: 15 MILLIGRAM, BID
     Route: 048
     Dates: start: 20200605
  6. JAKAFI [Suspect]
     Active Substance: RUXOLITINIB
     Indication: POLYCYTHAEMIA VERA
     Dosage: 5 MILLIGRAM, BID
     Route: 048
     Dates: start: 202004
  7. PREBIOTICS NOS;PROBIOTICS NOS [Concomitant]
     Indication: PRODUCT USED FOR UNKNOWN INDICATION
     Route: 065
  8. ALEVE [Concomitant]
     Active Substance: NAPROXEN SODIUM
     Indication: PAIN
     Dosage: PRN
     Route: 065

REACTIONS (9)
  - Pain [Unknown]
  - Hypertension [Recovering/Resolving]
  - Contusion [Recovering/Resolving]
  - Fatigue [Recovering/Resolving]
  - Chills [Recovering/Resolving]
  - Limb discomfort [Not Recovered/Not Resolved]
  - Neck mass [Not Recovered/Not Resolved]
  - Mass [Not Recovered/Not Resolved]
  - Platelet count decreased [Recovering/Resolving]

NARRATIVE: CASE EVENT DATE: 20200409
